FAERS Safety Report 9690543 (Version 1)
Quarter: 2013Q4

REPORT INFORMATION
  Report Type: Spontaneous
  Country: US (occurrence: US)
  Receive Date: 20131115
  Receipt Date: 20131115
  Transmission Date: 20140711
  Serious: No
  Sender: FDA-Public Use
  Company Number: US-PFIZER INC-2013326778

PATIENT
  Age: 65 Year
  Sex: Female
  Weight: 61.22 kg

DRUGS (5)
  1. GABAPENTIN [Suspect]
     Indication: SCIATICA
     Dosage: 600 MG, 3X/DAY
     Dates: start: 2013
  2. GABAPENTIN [Suspect]
     Dosage: 800 MG, 3X/DAY
  3. GABAPENTIN [Suspect]
     Dosage: 600 MG, 2X/DAY
  4. GABAPENTIN [Suspect]
     Dosage: UNK
  5. LOSARTAN POTASSIUM [Concomitant]
     Indication: HYPERTENSION
     Dosage: 50 MG, 1X/DAY

REACTIONS (2)
  - Off label use [Unknown]
  - Drug ineffective [Unknown]
